FAERS Safety Report 21387692 (Version 1)
Quarter: 2022Q3

REPORT INFORMATION
  Report Type: Spontaneous
  Country: US (occurrence: US)
  Receive Date: 20220928
  Receipt Date: 20220928
  Transmission Date: 20221027
  Serious: No
  Sender: FDA-Public Use
  Company Number: US-009507513-2209USA003464

PATIENT
  Age: 60 Year
  Sex: Female

DRUGS (3)
  1. STROMECTOL [Suspect]
     Active Substance: IVERMECTIN
     Indication: COVID-19 treatment
     Dosage: 200 MG, TWO PILLS PER DAY, FOR FIVE DAYS
     Route: 048
     Dates: start: 2021, end: 2021
  2. ZINC [Concomitant]
     Active Substance: ZINC
  3. VITAMIN D3 [Concomitant]
     Active Substance: CHOLECALCIFEROL

REACTIONS (2)
  - Headache [Recovered/Resolved]
  - Drug effective for unapproved indication [Unknown]

NARRATIVE: CASE EVENT DATE: 20210101
